FAERS Safety Report 25026748 (Version 1)
Quarter: 2025Q1

REPORT INFORMATION
  Report Type: Spontaneous
  Country: US (occurrence: US)
  Receive Date: 20250301
  Receipt Date: 20250301
  Transmission Date: 20250409
  Serious: No
  Sender: SANOFI AVENTIS
  Company Number: US-SA-2025SA055785

PATIENT
  Age: 63 Year
  Sex: Female

DRUGS (13)
  1. CEREZYME [Suspect]
     Active Substance: IMIGLUCERASE
     Indication: Fabry^s disease
     Dosage: 2800 U, QOW
     Route: 042
     Dates: start: 20100324
  2. STERILE WATER [Concomitant]
     Active Substance: WATER
  3. EPINEPHRINE [Concomitant]
     Active Substance: EPINEPHRINE
  4. SODIUM CHLORIDE [Concomitant]
     Active Substance: SODIUM CHLORIDE
  5. IBUPROFEN [Concomitant]
     Active Substance: IBUPROFEN
  6. OREGANO LEAF OIL [Concomitant]
     Active Substance: OREGANO LEAF OIL
  7. HEPARIN [Concomitant]
     Active Substance: HEPARIN SODIUM
  8. SODIUM CHLORIDE [Concomitant]
     Active Substance: SODIUM CHLORIDE
  9. BREZTRI [Concomitant]
     Active Substance: BUDESONIDE\FORMOTEROL\GLYCOPYRROLATE
  10. LIDOCAINE [Concomitant]
     Active Substance: LIDOCAINE
  11. PROAIR HFA [Concomitant]
     Active Substance: ALBUTEROL SULFATE
  12. LORATADINE [Concomitant]
     Active Substance: LORATADINE
  13. OXYGEN [Concomitant]
     Active Substance: OXYGEN

REACTIONS (2)
  - Rhinorrhoea [Recovering/Resolving]
  - Product use in unapproved indication [Unknown]

NARRATIVE: CASE EVENT DATE: 20100324
